FAERS Safety Report 16782477 (Version 4)
Quarter: 2019Q4

REPORT INFORMATION
  Report Type: Report from Study
  Country: CA (occurrence: CA)
  Receive Date: 20190906
  Receipt Date: 20191212
  Transmission Date: 20200122
  Serious: Yes (Other)
  Sender: FDA-Public Use
  Company Number: CA-NALPROPION PHARMACEUTICALS INC.-2019-008501

PATIENT

DRUGS (9)
  1. TEVA SOLIFENACIN [Concomitant]
     Indication: PRODUCT USED FOR UNKNOWN INDICATION
     Dosage: DAILY
     Route: 048
  2. SENNA TAB [Concomitant]
     Indication: FAECES HARD
     Dosage: DAILY
     Route: 048
  3. INSULIN [Concomitant]
     Active Substance: INSULIN NOS
     Indication: DIABETES MELLITUS
  4. CONTRAVE [Suspect]
     Active Substance: BUPROPION HYDROCHLORIDE\NALTREXONE HYDROCHLORIDE
     Indication: WEIGHT CONTROL
     Dosage: APPROXIMATELY 31/JUL/2019 TO 06/AUG/2019, 1 TABLET DAILY
     Route: 048
     Dates: start: 201907, end: 201908
  5. CONTRAVE [Suspect]
     Active Substance: BUPROPION HYDROCHLORIDE\NALTREXONE HYDROCHLORIDE
     Dosage: APPROXIMATELY 07/AUG/2019 TO 13/AUG/2019, 2 TABLETS DAILY
     Route: 048
     Dates: start: 201908, end: 201908
  6. CONTRAVE [Suspect]
     Active Substance: BUPROPION HYDROCHLORIDE\NALTREXONE HYDROCHLORIDE
     Dosage: APPROXIMATELY 14/AUG/2019 TO 20/AUG/2019, 3 TABLETS DAILY
     Route: 048
     Dates: start: 201908, end: 201908
  7. CONTRAVE [Suspect]
     Active Substance: BUPROPION HYDROCHLORIDE\NALTREXONE HYDROCHLORIDE
     Dosage: APPROXIMATELY 21/AUG/2019, 2 TABLETS IN MORNING AND 2 TABLETS AT NIGHT
     Route: 048
     Dates: start: 201908, end: 2019
  8. CRANBERRY. [Concomitant]
     Active Substance: CRANBERRY
     Indication: SUPPLEMENTATION THERAPY
     Dosage: DAILY
     Route: 048
  9. INSULIN [Concomitant]
     Active Substance: INSULIN NOS
     Indication: DIABETES MELLITUS
     Dosage: 4 IN 1 D

REACTIONS (9)
  - Feeling abnormal [Recovered/Resolved]
  - Flatulence [Recovered/Resolved]
  - Abdominal distension [Recovered/Resolved]
  - Dizziness [Recovered/Resolved]
  - Therapy cessation [Unknown]
  - Tunnel vision [Recovered/Resolved]
  - Abdominal discomfort [Recovered/Resolved]
  - Constipation [Recovered/Resolved]
  - Inability to afford medication [Unknown]

NARRATIVE: CASE EVENT DATE: 2019
